FAERS Safety Report 11955045 (Version 1)
Quarter: 2016Q1

REPORT INFORMATION
  Report Type: Report from Study
  Country: US (occurrence: US)
  Receive Date: 20160126
  Receipt Date: 20160126
  Transmission Date: 20160526
  Serious: No
  Sender: FDA-Public Use
  Company Number: US-ABBVIE-15K-163-1362653-00

PATIENT
  Sex: Female

DRUGS (4)
  1. HUMIRA [Suspect]
     Active Substance: ADALIMUMAB
     Indication: CROHN^S DISEASE
     Dosage: DAY ONE
     Route: 065
     Dates: start: 20150119, end: 20150119
  2. HUMIRA [Suspect]
     Active Substance: ADALIMUMAB
     Dosage: DAY FIFTEEN
     Route: 065
     Dates: start: 20150202, end: 20150202
  3. RETINOL [Suspect]
     Active Substance: RETINOL
     Indication: PRODUCT USED FOR UNKNOWN INDICATION
     Route: 065
  4. HUMIRA [Suspect]
     Active Substance: ADALIMUMAB
     Route: 065

REACTIONS (5)
  - Arthritis [Unknown]
  - Drug ineffective [Not Recovered/Not Resolved]
  - Ichthyosis acquired [Recovered/Resolved]
  - Therapeutic response unexpected [Recovered/Resolved]
  - Rash papular [Not Recovered/Not Resolved]

NARRATIVE: CASE EVENT DATE: 2014
